FAERS Safety Report 25408038 (Version 2)
Quarter: 2025Q2

REPORT INFORMATION
  Report Type: Spontaneous
  Country: RO (occurrence: RO)
  Receive Date: 20250606
  Receipt Date: 20250613
  Transmission Date: 20250717
  Serious: Yes (Life-Threatening, Hospitalization, Other)
  Sender: MYLAN
  Company Number: RO-SANDOZ-SDZ2025RO023227

PATIENT
  Age: 51 Year
  Sex: Male
  Weight: 75 kg

DRUGS (24)
  1. LENALIDOMIDE [Suspect]
     Active Substance: LENALIDOMIDE
     Indication: Diffuse large B-cell lymphoma
     Dosage: 20 MG, QD
     Dates: start: 20241112, end: 20241202
  2. LENALIDOMIDE [Suspect]
     Active Substance: LENALIDOMIDE
     Dosage: 20 MG, QD
     Dates: start: 20241112, end: 20241202
  3. LENALIDOMIDE [Suspect]
     Active Substance: LENALIDOMIDE
     Dosage: 20 MG, QD
     Route: 048
     Dates: start: 20241112, end: 20241202
  4. LENALIDOMIDE [Suspect]
     Active Substance: LENALIDOMIDE
     Dosage: 20 MG, QD
     Route: 048
     Dates: start: 20241112, end: 20241202
  5. LENALIDOMIDE [Suspect]
     Active Substance: LENALIDOMIDE
     Dosage: 25 MG, QD
     Dates: start: 20241112, end: 20241202
  6. LENALIDOMIDE [Suspect]
     Active Substance: LENALIDOMIDE
     Dosage: 25 MG, QD
     Dates: start: 20241112, end: 20241202
  7. LENALIDOMIDE [Suspect]
     Active Substance: LENALIDOMIDE
     Dosage: 25 MG, QD
     Route: 048
     Dates: start: 20241112, end: 20241202
  8. LENALIDOMIDE [Suspect]
     Active Substance: LENALIDOMIDE
     Dosage: 25 MG, QD
     Route: 048
     Dates: start: 20241112, end: 20241202
  9. LENALIDOMIDE [Suspect]
     Active Substance: LENALIDOMIDE
     Dosage: 25 MG, QD
     Dates: start: 20250108, end: 20250113
  10. LENALIDOMIDE [Suspect]
     Active Substance: LENALIDOMIDE
     Dosage: 25 MG, QD
     Route: 048
     Dates: start: 20250108, end: 20250113
  11. LENALIDOMIDE [Suspect]
     Active Substance: LENALIDOMIDE
     Dosage: 25 MG, QD
     Dates: start: 20250108, end: 20250113
  12. LENALIDOMIDE [Suspect]
     Active Substance: LENALIDOMIDE
     Dosage: 25 MG, QD
     Route: 048
     Dates: start: 20250108, end: 20250113
  13. APIXABAN [Suspect]
     Active Substance: APIXABAN
     Indication: Prophylaxis
     Dates: start: 20241112, end: 20250108
  14. APIXABAN [Suspect]
     Active Substance: APIXABAN
     Route: 065
     Dates: start: 20241112, end: 20250108
  15. APIXABAN [Suspect]
     Active Substance: APIXABAN
     Route: 065
     Dates: start: 20241112, end: 20250108
  16. APIXABAN [Suspect]
     Active Substance: APIXABAN
     Dates: start: 20241112, end: 20250108
  17. TAFASITAMAB [Suspect]
     Active Substance: TAFASITAMAB
     Indication: Diffuse large B-cell lymphoma
     Dates: start: 20241112, end: 20250115
  18. TAFASITAMAB [Suspect]
     Active Substance: TAFASITAMAB
     Dates: start: 20241112, end: 20250115
  19. TAFASITAMAB [Suspect]
     Active Substance: TAFASITAMAB
     Route: 042
     Dates: start: 20241112, end: 20250115
  20. TAFASITAMAB [Suspect]
     Active Substance: TAFASITAMAB
     Route: 042
     Dates: start: 20241112, end: 20250115
  21. TAFASITAMAB [Suspect]
     Active Substance: TAFASITAMAB
  22. TAFASITAMAB [Suspect]
     Active Substance: TAFASITAMAB
  23. TAFASITAMAB [Suspect]
     Active Substance: TAFASITAMAB
     Route: 042
  24. TAFASITAMAB [Suspect]
     Active Substance: TAFASITAMAB
     Route: 042

REACTIONS (5)
  - Intestinal obstruction [Recovered/Resolved]
  - Peritonitis [Recovered/Resolved]
  - Abdominal abscess [Recovered/Resolved]
  - Fatigue [Recovering/Resolving]
  - Intra-abdominal haematoma [Not Recovered/Not Resolved]

NARRATIVE: CASE EVENT DATE: 20250113
